FAERS Safety Report 4400062-1 (Version None)
Quarter: 2004Q3

REPORT INFORMATION
  Report Type: 
  Country: None (occurrence: None)
  Receive Date: 20040714
  Receipt Date: 20040630
  Transmission Date: 20050211
  Serious: No
  Sender: FDA-Public Use
  Company Number: 2004221725JP

PATIENT
  Sex: 0

DRUGS (1)
  1. XALANTAN (LATANOPROST)SOLUTION, STERILE, 50 UG/ML [Suspect]
     Dosage: OPHTHALMIC
     Route: 047

REACTIONS (1)
  - INTRAOCULAR PRESSURE INCREASED [None]
